FAERS Safety Report 25529822 (Version 1)
Quarter: 2025Q3

REPORT INFORMATION
  Report Type: Spontaneous
  Country: CN (occurrence: CN)
  Receive Date: 20250708
  Receipt Date: 20250708
  Transmission Date: 20251021
  Serious: Yes (Other)
  Sender: GLAND PHARMA LTD
  Company Number: CN-GLANDPHARMA-CN-2025GLNLIT01595

PATIENT
  Age: 85 Year
  Sex: Male

DRUGS (3)
  1. AMIODARONE HYDROCHLORIDE [Suspect]
     Active Substance: AMIODARONE HYDROCHLORIDE
     Indication: Atrial fibrillation
     Route: 065
  2. RIVAROXABAN [Concomitant]
     Active Substance: RIVAROXABAN
     Indication: Product used for unknown indication
     Route: 065
  3. PRAVASTATIN [Concomitant]
     Active Substance: PRAVASTATIN
     Indication: Product used for unknown indication
     Route: 065

REACTIONS (4)
  - Hepatotoxicity [Unknown]
  - Toxicity to various agents [Unknown]
  - Hepatic steatosis [Unknown]
  - Product use in unapproved indication [Unknown]
